FAERS Safety Report 5269154-1 (Version None)
Quarter: 2007Q1

REPORT INFORMATION
  Report Type: 
  Country: None (occurrence: None)
  Receive Date: 20070314
  Receipt Date: 20070310
  Transmission Date: 20070707
  Serious: No
  Sender: FDA-Public Use
  Company Number: 225252

PATIENT
  Age: 63 Year
  Sex: Male

DRUGS (13)
  1. RITUXAN [Suspect]
     Indication: B-CELL LYMPHOMA
     Dosage: 375 MG/M2
  2. PENTOSTATIN (PENTOSTATIN) [Concomitant]
  3. CYCLOPHOSPHAMIDE [Concomitant]
  4. ACETAMINOPHEN [Concomitant]
  5. DIPHENHYDRAMINE (DIPHENHYDRAMINE NOS) [Concomitant]
  6. HYDROCORTISONE [Concomitant]
  7. MEPERIDINE HCL [Concomitant]
  8. ONDANSETRON HCL [Concomitant]
  9. PROMETHEZINE HCL [Concomitant]
  10. COMPAZINE [Concomitant]
  11. BACTRIM DS [Concomitant]
  12. ACYCLOVIR [Concomitant]
  13. SYNTHROID [Concomitant]

REACTIONS (4)
  - ANAEMIA [None]
  - LUNG DISORDER [None]
  - NO THERAPEUTIC RESPONSE [None]
  - T-CELL LYMPHOMA [None]
